FAERS Safety Report 23089748 (Version 1)
Quarter: 2023Q4

REPORT INFORMATION
  Report Type: Spontaneous
  Country: US (occurrence: US)
  Receive Date: 20231020
  Receipt Date: 20231020
  Transmission Date: 20240110
  Serious: No
  Sender: FDA-Public Use
  Company Number: US-GSK-US2023142945

PATIENT
  Sex: Male

DRUGS (1)
  1. NUCALA [Suspect]
     Active Substance: MEPOLIZUMAB
     Indication: Asthma
     Dosage: UNK
     Dates: start: 20230918

REACTIONS (6)
  - Wheezing [Unknown]
  - Erythema [Unknown]
  - Headache [Unknown]
  - Pyrexia [Unknown]
  - Back pain [Unknown]
  - Asthenia [Unknown]
